FAERS Safety Report 9239795 (Version 1)
Quarter: 2013Q2

REPORT INFORMATION
  Report Type: Spontaneous
  Country: US (occurrence: US)
  Receive Date: 20130418
  Receipt Date: 20130418
  Transmission Date: 20140414
  Serious: No
  Sender: FDA-Public Use
  Company Number: US-BAYER-2013-048863

PATIENT
  Age: 80 Year
  Sex: Female
  Weight: 44.9 kg

DRUGS (4)
  1. ALEVE TABLET [Suspect]
     Indication: ANALGESIC THERAPY
     Dosage: 1 DF, QD
     Route: 048
     Dates: start: 20130409
  2. LEVOTHYROXINE [Concomitant]
  3. LICORICE [Concomitant]
  4. ALPRAZOLAM [Concomitant]

REACTIONS (1)
  - Dizziness [Recovered/Resolved]
